FAERS Safety Report 24104372 (Version 2)
Quarter: 2024Q3

REPORT INFORMATION
  Report Type: Spontaneous
  Country: IR (occurrence: IR)
  Receive Date: 20240717
  Receipt Date: 20240916
  Transmission Date: 20241016
  Serious: Yes (Life-Threatening, Hospitalization)
  Sender: NOVARTIS
  Company Number: IR-002147023-NVSC2024IR146230

PATIENT
  Age: 25 Year
  Sex: Female

DRUGS (2)
  1. LETROZOLE [Suspect]
     Active Substance: LETROZOLE
     Indication: Ovulation induction
     Dosage: UNK, FOR PAST 6 MONTHS
     Route: 065
  2. FOLLITROPIN [Concomitant]
     Active Substance: FOLLITROPIN
     Indication: Ovulation induction
     Dosage: FOR PAST 6 MONTHS
     Route: 065

REACTIONS (4)
  - Ectopic pregnancy [Recovered/Resolved]
  - Ruptured ectopic pregnancy [Recovered/Resolved]
  - Maternal exposure before pregnancy [Unknown]
  - Off label use [Unknown]
